FAERS Safety Report 8440731-X (Version None)
Quarter: 2012Q2

REPORT INFORMATION
  Report Type: 
  Country: None (occurrence: None)
  Receive Date: 20120615
  Receipt Date: 20120608
  Transmission Date: 20120825
  Serious: Yes (Other)
  Sender: FDA-Public Use
  Company Number: US-PFIZER INC-2009314338

PATIENT
  Sex: Female

DRUGS (6)
  1. DILANTIN-125 [Suspect]
     Indication: CONVULSION
     Dosage: 100 MG, UNK
     Route: 048
     Dates: start: 20011213
  2. DILANTIN KAPSEAL [Suspect]
     Indication: CONVULSION
     Dosage: 100 MG, UNK
     Route: 048
     Dates: start: 20000807
  3. DILANTIN KAPSEAL [Suspect]
     Dosage: 100 MG, 4X/DAY
     Route: 048
     Dates: start: 20070104
  4. DILANTIN KAPSEAL [Suspect]
     Dosage: 100 MG, 3X/DAY
     Route: 048
     Dates: start: 20040227
  5. DILANTIN [Suspect]
     Indication: CONVULSION
     Dosage: UNK
     Dates: start: 20050303
  6. DILANTIN-125 [Suspect]
     Dosage: 100 MG, 3X/DAY
     Route: 048
     Dates: start: 20090219

REACTIONS (1)
  - STEVENS-JOHNSON SYNDROME [None]
